FAERS Safety Report 10194115 (Version 1)
Quarter: 2014Q2

REPORT INFORMATION
  Report Type: Spontaneous
  Country: US (occurrence: US)
  Receive Date: 20140524
  Receipt Date: 20140524
  Transmission Date: 20141212
  Serious: No
  Sender: FDA-Public Use
  Company Number: US-SANOFI-AVENTIS-2013SA056801

PATIENT
  Sex: Female

DRUGS (4)
  1. LANTUS SOLOSTAR [Suspect]
     Indication: TYPE 2 DIABETES MELLITUS
     Dosage: DOSAGE - 10PM/20AM
     Route: 051
     Dates: start: 20130530
  2. SOLOSTAR [Concomitant]
     Indication: DEVICE THERAPY
     Dates: start: 20130530
  3. HUMALOG [Concomitant]
  4. NOVOLOG [Concomitant]

REACTIONS (6)
  - Chest discomfort [Recovered/Resolved]
  - Adverse drug reaction [Recovered/Resolved]
  - Blood glucose decreased [Recovered/Resolved]
  - Tremor [Recovered/Resolved]
  - Headache [Recovered/Resolved]
  - Underdose [Unknown]
